FAERS Safety Report 13234803 (Version 1)
Quarter: 2017Q1

REPORT INFORMATION
  Report Type: Spontaneous
  Country: US (occurrence: US)
  Receive Date: 20170215
  Receipt Date: 20170215
  Transmission Date: 20170428
  Serious: No
  Sender: FDA-Public Use
  Company Number: None

PATIENT
  Age: 34 Year
  Sex: Female
  Weight: 76.95 kg

DRUGS (14)
  1. ELDERBERRY [Concomitant]
     Active Substance: HERBALS
  2. ADDERALL ER [Concomitant]
  3. CYMBALTA [Concomitant]
     Active Substance: DULOXETINE HYDROCHLORIDE
  4. FAMATIDINE [Concomitant]
  5. OSELTAMIVIR PHOSPHATE CAPSULES [Suspect]
     Active Substance: OSELTAMIVIR PHOSPHATE
     Indication: INFLUENZA
     Dosage: ?          QUANTITY:10 CAPSULE(S);?
     Route: 048
  6. NOVOLOG WITH INSULIN PUMP [Concomitant]
  7. PROBIOTICS [Concomitant]
     Active Substance: PROBIOTICS NOS
  8. TRICOR [Concomitant]
     Active Substance: FENOFIBRATE
  9. WELLBUTRIN XL [Concomitant]
     Active Substance: BUPROPION HYDROCHLORIDE
  10. LATUDA [Concomitant]
     Active Substance: LURASIDONE HYDROCHLORIDE
  11. VITAMIN D [Concomitant]
     Active Substance: CHOLECALCIFEROL
  12. OSELTAMIVIR PHOSPHATE CAPSULES [Suspect]
     Active Substance: OSELTAMIVIR PHOSPHATE
     Indication: PROPHYLAXIS
     Dosage: ?          QUANTITY:10 CAPSULE(S);?
     Route: 048
  13. GARLIC. [Concomitant]
     Active Substance: GARLIC
  14. TYLENOL [Concomitant]
     Active Substance: ACETAMINOPHEN

REACTIONS (5)
  - Emotional disorder [None]
  - Anger [None]
  - Agitation [None]
  - Depression [None]
  - Crying [None]

NARRATIVE: CASE EVENT DATE: 20170211
